FAERS Safety Report 4856620-3 (Version None)
Quarter: 2005Q4

REPORT INFORMATION
  Report Type: 
  Country: None (occurrence: None)
  Receive Date: 20051219
  Receipt Date: 20050110
  Transmission Date: 20060501
  Serious: No
  Sender: FDA-Public Use
  Company Number: US-GLAXOSMITHKLINE-A0539932A

PATIENT
  Age: 40 Year
  Sex: Male
  Weight: 111 kg

DRUGS (2)
  1. NICODERM CQ [Suspect]
     Dates: start: 20041224, end: 20041225
  2. MULTI-VITAMIN [Concomitant]
     Route: 048

REACTIONS (5)
  - BLOOD PRESSURE INCREASED [None]
  - DIZZINESS [None]
  - HEART RATE INCREASED [None]
  - MALAISE [None]
  - PSYCHOMOTOR HYPERACTIVITY [None]
